FAERS Safety Report 4895640-X (Version None)
Quarter: 2006Q1

REPORT INFORMATION
  Report Type: 
  Country: None (occurrence: None)
  Receive Date: 20060125
  Receipt Date: 20060113
  Transmission Date: 20060701
  Serious: Yes (Hospitalization, Other)
  Sender: FDA-Public Use
  Company Number: KII-2006-0020671

PATIENT
  Age: 50 Year
  Sex: Female

DRUGS (2)
  1. OXYCODONE HCL [Suspect]
     Indication: BACK PAIN
     Dosage: 80 MG, SEE TEXT, ORAL
     Route: 048
  2. ASPIRIN [Suspect]

REACTIONS (17)
  - ABNORMAL BEHAVIOUR [None]
  - ALANINE AMINOTRANSFERASE INCREASED [None]
  - AMNESIA [None]
  - BLOOD BICARBONATE DECREASED [None]
  - BLOOD CALCIUM DECREASED [None]
  - BLOOD CREATINE PHOSPHOKINASE INCREASED [None]
  - BLOOD PRESSURE DECREASED [None]
  - COMA [None]
  - CONFUSIONAL STATE [None]
  - IRRITABILITY [None]
  - LOSS OF CONSCIOUSNESS [None]
  - MENTAL STATUS CHANGES [None]
  - MYOGLOBIN BLOOD INCREASED [None]
  - OVERDOSE [None]
  - RENAL FAILURE ACUTE [None]
  - TREMOR [None]
  - WHITE BLOOD CELL COUNT INCREASED [None]
